FAERS Safety Report 9315191 (Version 1)
Quarter: 2013Q2

REPORT INFORMATION
  Report Type: Spontaneous
  Country: CA (occurrence: CA)
  Receive Date: 20130529
  Receipt Date: 20130529
  Transmission Date: 20140414
  Serious: Yes (Other)
  Sender: FDA-Public Use
  Company Number: CA-BIOMARINAP-CA-2013-100859

PATIENT
  Sex: Male
  Weight: 11.7 kg

DRUGS (3)
  1. ALDURAZYME [Suspect]
     Indication: MUCOPOLYSACCHARIDOSIS I
     Dosage: 0.58 MG/KG, QW
     Route: 042
     Dates: start: 20130107
  2. ACETAMINOPHEN [Concomitant]
     Indication: PREMEDICATION
  3. BENADRYL                           /00000402/ [Concomitant]
     Indication: PREMEDICATION

REACTIONS (2)
  - Respiratory syncytial virus infection [Recovered/Resolved]
  - Infusion related reaction [Recovered/Resolved]
